FAERS Safety Report 7622684-7 (Version None)
Quarter: 2011Q3

REPORT INFORMATION
  Report Type: 
  Country: None (occurrence: None)
  Receive Date: 20110719
  Receipt Date: 20110719
  Transmission Date: 20111222
  Serious: Yes (Hospitalization)
  Sender: FDA-Public Use
  Company Number: None

PATIENT
  Sex: Male
  Weight: 77.3 kg

DRUGS (2)
  1. CISPLATIN [Suspect]
     Dosage: 150 MG
     Dates: end: 20110628
  2. ETOPOSIDE [Suspect]
     Dosage: 200 MG
     Dates: end: 20110630

REACTIONS (3)
  - HYPOVOLAEMIA [None]
  - DEHYDRATION [None]
  - PNEUMONIA [None]
